FAERS Safety Report 11871706 (Version 1)
Quarter: 2015Q4

REPORT INFORMATION
  Report Type: Spontaneous
  Country: US (occurrence: US)
  Receive Date: 20151228
  Receipt Date: 20151228
  Transmission Date: 20160305
  Serious: Yes (Other)
  Sender: FDA-Public Use
  Company Number: US-PFIZER INC-2015383222

PATIENT
  Age: 62 Year
  Sex: Female

DRUGS (1)
  1. LYRICA [Suspect]
     Active Substance: PREGABALIN
     Indication: DIABETIC NEPHROPATHY
     Dosage: 100 MG, 2X/DAY
     Route: 048
     Dates: start: 201410

REACTIONS (4)
  - Impaired healing [Recovering/Resolving]
  - Injury [Unknown]
  - Fracture [Recovering/Resolving]
  - Cellulitis [Recovering/Resolving]
